FAERS Safety Report 9364192 (Version 2)
Quarter: 2013Q4

REPORT INFORMATION
  Report Type: Spontaneous
  Country: JP (occurrence: JP)
  Receive Date: 20130624
  Receipt Date: 20131002
  Transmission Date: 20140711
  Serious: Yes (Death, Hospitalization)
  Sender: FDA-Public Use
  Company Number: JP-PFIZER INC-2013187744

PATIENT
  Age: 70 Year
  Sex: Male
  Weight: 82 kg

DRUGS (16)
  1. LYRICA [Suspect]
     Indication: NEURALGIA
     Dosage: 75 MG, 2X/DAY
     Route: 048
     Dates: start: 20130523, end: 20130527
  2. ALIMTA [Suspect]
     Indication: LUNG NEOPLASM MALIGNANT
     Dosage: UNK
     Route: 042
     Dates: start: 20130426, end: 20130426
  3. ALIMTA [Suspect]
     Dosage: 690 MG, 1X/DAY
     Route: 042
     Dates: start: 20130517, end: 20130517
  4. CELECOX [Concomitant]
     Indication: CANCER PAIN
     Dosage: 100 MG, 2X/DAY
     Route: 048
     Dates: start: 20130409, end: 20130527
  5. PANVITAN [Concomitant]
     Indication: HYPOVITAMINOSIS
     Dosage: 1 G, 1X/DAY
     Route: 048
     Dates: start: 20130419, end: 20130527
  6. URIEF [Concomitant]
     Indication: BENIGN PROSTATIC HYPERPLASIA
     Dosage: 4 MG, 2X/DAY
     Route: 048
     Dates: end: 20130527
  7. UBRETID [Concomitant]
     Indication: BENIGN PROSTATIC HYPERPLASIA
     Dosage: 5 MG, 1X/DAY
     Route: 048
     Dates: end: 20130527
  8. VASOMET [Concomitant]
     Indication: BENIGN PROSTATIC HYPERPLASIA
     Dosage: 0.5 MG, 2X/DAY
     Route: 048
     Dates: end: 20130527
  9. LIVALO [Concomitant]
     Indication: DYSLIPIDAEMIA
     Dosage: 1 MG, 1X/DAY
     Route: 048
     Dates: end: 20130527
  10. EVIPROSTAT [Concomitant]
     Indication: BENIGN PROSTATIC HYPERPLASIA
     Dosage: 3 MG, 3X/DAY
     Route: 048
     Dates: end: 20130527
  11. ADALAT CR [Concomitant]
     Indication: HYPERTENSION
     Dosage: 20 MG, 1X/DAY
     Route: 048
     Dates: end: 20130527
  12. PURSENNID [Concomitant]
     Indication: CONSTIPATION
     Dosage: 24 MG, 1X/DAY
     Route: 048
     Dates: end: 20130527
  13. MAGNESIUM OXIDE [Concomitant]
     Indication: CONSTIPATION
     Dosage: 0.5 G, 3X/DAY
     Route: 048
     Dates: end: 20130527
  14. XYZAL [Concomitant]
     Indication: PRURITUS
     Dosage: 5 MG, 1X/DAY
     Route: 048
     Dates: start: 20130101, end: 20130527
  15. OXYCONTIN [Concomitant]
     Indication: CANCER PAIN
     Dosage: UNK
     Route: 048
     Dates: start: 20130509, end: 20130527
  16. OXYFAST [Concomitant]
     Indication: CANCER PAIN
     Dosage: UNK
     Route: 042
     Dates: start: 20130523, end: 20130526

REACTIONS (1)
  - Interstitial lung disease [Fatal]
